FAERS Safety Report 25058687 (Version 3)
Quarter: 2025Q4

REPORT INFORMATION
  Report Type: Spontaneous
  Country: US (occurrence: US)
  Receive Date: 20250310
  Receipt Date: 20251028
  Transmission Date: 20260118
  Serious: No
  Sender: ROCHE
  Company Number: US-ROCHE-10000226019

PATIENT
  Sex: Male

DRUGS (19)
  1. XOLAIR PFS [Suspect]
     Active Substance: OMALIZUMAB
     Indication: Asthma
     Dosage: STRENGTH: 75 MG/0.5 ML
     Route: 058
  2. XOLAIR PFS [Suspect]
     Active Substance: OMALIZUMAB
     Dosage: STRENGTH: 150 MG/ML
     Route: 058
  3. XOLAIR PFS [Suspect]
     Active Substance: OMALIZUMAB
     Route: 058
  4. BENZONATATE CAP 100MG [Concomitant]
  5. MUCINEX TB1 600MG [Concomitant]
  6. FERROUS SULF TBE 325 (65 [Concomitant]
  7. MONTELUKAST SODIUM [Concomitant]
     Active Substance: MONTELUKAST SODIUM
  8. CAPLYTA CAP 21MG [Concomitant]
  9. FERROUS GLFERROUS GLUC TAB 324 (38) [Concomitant]
  10. FINASTERIDE [Concomitant]
     Active Substance: FINASTERIDE
  11. FLUTICASONE SUS 50MCG/AC [Concomitant]
  12. JARDIANCE TAB 25MG [Concomitant]
  13. LORAZEPAM [Concomitant]
     Active Substance: LORAZEPAM
  14. PANTOPRAZOLE SOL 40MG [Concomitant]
  15. ROSUVASTATIN [Concomitant]
     Active Substance: ROSUVASTATIN
  16. TAMSULOSIN H CAP 0.4MG [Concomitant]
  17. TRELEGY ELLIAEP 100-62.5 [Concomitant]
  18. VENTOLIN HFA AER 108 (90) [Concomitant]
  19. VITAMIN D TAB 25 MCG(1000 [Concomitant]

REACTIONS (3)
  - Off label use [Unknown]
  - Asthma [Unknown]
  - Productive cough [Unknown]
